FAERS Safety Report 8820994 (Version 1)
Quarter: 2012Q4

REPORT INFORMATION
  Report Type: Report from Study
  Country: US (occurrence: US)
  Receive Date: 20121002
  Receipt Date: 20121002
  Transmission Date: 20130627
  Serious: Yes (Other)
  Sender: FDA-Public Use
  Company Number: US-ROCHE-1134280

PATIENT
  Age: 57 Year
  Sex: Male
  Weight: 86.1 kg

DRUGS (7)
  1. ZELBORAF [Suspect]
     Indication: MALIGNANT MELANOMA
     Dosage: last dose prior to SAE: 03/Jul/2012
     Route: 048
     Dates: start: 20091106
  2. METOPROLOL SUCCINATE [Interacting]
     Indication: HYPERTENSION
     Route: 065
     Dates: start: 201205, end: 20120731
  3. METOPROLOL SUCCINATE [Interacting]
     Route: 065
     Dates: start: 20120731
  4. ATORVASTATIN CALCIUM [Interacting]
     Indication: HYPERLIPIDAEMIA
     Route: 065
     Dates: start: 20120701, end: 20120706
  5. LOMOTIL [Concomitant]
     Route: 065
     Dates: start: 20110617
  6. IBUPROFEN [Concomitant]
     Route: 065
     Dates: start: 20100420
  7. TYLENOL [Concomitant]
     Route: 065
     Dates: start: 20100812

REACTIONS (1)
  - Syncope [Recovered/Resolved]
